FAERS Safety Report 26132224 (Version 1)
Quarter: 2025Q4

REPORT INFORMATION
  Report Type: Spontaneous
  Country: US (occurrence: None)
  Receive Date: 20251208
  Receipt Date: 20251208
  Transmission Date: 20260117
  Serious: Yes (Hospitalization)
  Sender: FDA-CTU
  Company Number: None

PATIENT
  Sex: Female

DRUGS (1)
  1. CAPECITABINE [Suspect]
     Active Substance: CAPECITABINE
     Indication: Colon cancer
     Dosage: 2000 MG SEE EVENT ORAL
     Route: 048

REACTIONS (5)
  - Diarrhoea [None]
  - Dehydration [None]
  - Asthenia [None]
  - Fall [None]
  - Therapy interrupted [None]
